FAERS Safety Report 15514503 (Version 1)
Quarter: 2018Q4

REPORT INFORMATION
  Report Type: Spontaneous
  Country: US (occurrence: US)
  Receive Date: 20181016
  Receipt Date: 20181016
  Transmission Date: 20190205
  Serious: No
  Sender: FDA-Public Use
  Company Number: US-AMGEN-USASP2018132145

PATIENT
  Age: 67 Year
  Sex: Male

DRUGS (3)
  1. NEULASTA [Suspect]
     Active Substance: PEGFILGRASTIM
     Indication: PRODUCT USED FOR UNKNOWN INDICATION
     Dosage: UNK UNK, CYCLICAL (ON DAY 4 OF 14 DAY CYCLE)
     Route: 065
  2. 5-FU [Concomitant]
     Active Substance: FLUOROURACIL
     Indication: COLORECTAL CANCER METASTATIC
     Dosage: UNK UNK, CYCLICAL (ON DAY 2-3 OF A 14 DAY CYCLE)
  3. IRINOTECAN [Concomitant]
     Active Substance: IRINOTECAN
     Indication: COLORECTAL CANCER METASTATIC
     Dosage: UNK UNK, CYCLICAL (ON DAY 1 OF A 14 DAY CYCLE)
     Route: 065

REACTIONS (6)
  - Seasonal allergy [Recovering/Resolving]
  - Muscle tightness [Not Recovered/Not Resolved]
  - Blood pressure abnormal [Not Recovered/Not Resolved]
  - White blood cell disorder [Recovered/Resolved]
  - Blood disorder [Not Recovered/Not Resolved]
  - Pain in extremity [Not Recovered/Not Resolved]
